FAERS Safety Report 5123966-3 (Version None)
Quarter: 2006Q4

REPORT INFORMATION
  Report Type: 
  Country: None (occurrence: None)
  Receive Date: 20061010
  Receipt Date: 20060929
  Transmission Date: 20070319
  Serious: Yes (Other)
  Sender: FDA-Public Use
  Company Number: ES-JNJFOC-20061000490

PATIENT
  Age: 12 Month
  Sex: Male

DRUGS (4)
  1. REMICADE [Suspect]
     Dosage: 3RD INFUSION
     Route: 042
  2. REMICADE [Suspect]
     Indication: COLITIS
     Route: 042
  3. METHYLPREDNISOLONE [Concomitant]
     Route: 065
  4. TACROLIMUS [Concomitant]
     Route: 065

REACTIONS (3)
  - HYPOTENSION [None]
  - INFUSION RELATED REACTION [None]
  - RASH [None]
